FAERS Safety Report 23713129 (Version 4)
Quarter: 2025Q1

REPORT INFORMATION
  Report Type: Spontaneous
  Country: US (occurrence: US)
  Receive Date: 20240405
  Receipt Date: 20250131
  Transmission Date: 20250408
  Serious: No
  Sender: EISAI
  Company Number: US-Eisai-EC-2024-162732

PATIENT
  Age: 82 Year
  Sex: Female

DRUGS (4)
  1. LEQEMBI [Suspect]
     Active Substance: LECANEMAB-IRMB
     Indication: Dementia Alzheimer^s type
     Route: 042
     Dates: start: 20240327, end: 20240605
  2. LEQEMBI [Suspect]
     Active Substance: LECANEMAB-IRMB
     Route: 042
     Dates: start: 20240717
  3. DONEPEZIL [Concomitant]
     Active Substance: DONEPEZIL
  4. MEMANTINE [Concomitant]
     Active Substance: MEMANTINE

REACTIONS (6)
  - Amyloid related imaging abnormality-oedema/effusion [Recovered/Resolved]
  - Dizziness [Unknown]
  - Diarrhoea [Unknown]
  - Withdrawal syndrome [Unknown]
  - Abdominal pain [Recovered/Resolved]
  - Hallucination [Recovered/Resolved]

NARRATIVE: CASE EVENT DATE: 20240327
